FAERS Safety Report 15848462 (Version 1)
Quarter: 2019Q1

REPORT INFORMATION
  Report Type: Spontaneous
  Country: JP (occurrence: JP)
  Receive Date: 20190121
  Receipt Date: 20190121
  Transmission Date: 20190417
  Serious: Yes (Other)
  Sender: FDA-Public Use
  Company Number: JP-BAYER-2019-010584

PATIENT
  Sex: Female
  Weight: 3.53 kg

DRUGS (2)
  1. BAYASPIRIN 100 MG [Suspect]
     Active Substance: ASPIRIN
     Indication: PROTEIN S DECREASED
     Route: 064
  2. BAYASPIRIN 100 MG [Suspect]
     Active Substance: ASPIRIN
     Indication: HABITUAL ABORTION

REACTIONS (4)
  - Cerebral infarction [None]
  - Retinal vascular disorder [None]
  - Foetal exposure during pregnancy [None]
  - Bloch-Sulzberger syndrome [None]
